FAERS Safety Report 14507706 (Version 1)
Quarter: 2018Q1

REPORT INFORMATION
  Report Type: Spontaneous
  Country: US (occurrence: US)
  Receive Date: 20180208
  Receipt Date: 20180208
  Transmission Date: 20180509
  Serious: No
  Sender: FDA-Public Use
  Company Number: US-PURDUE-USA-2017-0142010

PATIENT
  Sex: Female

DRUGS (2)
  1. BUTRANS [Suspect]
     Active Substance: BUPRENORPHINE
     Indication: PAIN
     Dosage: 7.5 MCG/HR, WEEKLY
     Route: 062
     Dates: start: 2017
  2. BUTRANS [Suspect]
     Active Substance: BUPRENORPHINE
     Dosage: 7.5 MCG/HR, WEEKLY
     Route: 062

REACTIONS (3)
  - Application site vesicles [Recovering/Resolving]
  - Application site erythema [Recovering/Resolving]
  - Product adhesion issue [Unknown]

NARRATIVE: CASE EVENT DATE: 2017
